FAERS Safety Report 20462761 (Version 3)
Quarter: 2022Q1

REPORT INFORMATION
  Report Type: Spontaneous
  Country: US (occurrence: US)
  Receive Date: 20220211
  Receipt Date: 20220326
  Transmission Date: 20220423
  Serious: Yes (Hospitalization)
  Sender: FDA-Public Use
  Company Number: US-SA-SAC20220210001173

PATIENT
  Age: 83 Year
  Sex: Male

DRUGS (1)
  1. DUPIXENT [Suspect]
     Active Substance: DUPILUMAB
     Indication: Chronic sinusitis
     Dosage: 300 MG,QOW
     Route: 058
     Dates: start: 202202

REACTIONS (3)
  - Hospitalisation [Unknown]
  - Gallbladder operation [Unknown]
  - Product use in unapproved indication [Unknown]
